FAERS Safety Report 25318022 (Version 1)
Quarter: 2025Q2

REPORT INFORMATION
  Report Type: Spontaneous
  Country: US (occurrence: US)
  Receive Date: 20250515
  Receipt Date: 20250515
  Transmission Date: 20250716
  Serious: No
  Sender: Kenvue
  Company Number: US-KENVUE-20250502460

PATIENT
  Sex: Female

DRUGS (1)
  1. MENS ROGAINE EXTRA STRENGTH [Suspect]
     Active Substance: MINOXIDIL
     Indication: Product used for unknown indication
     Dosage: 1.5 ML TWICE A DAY, 2 TO 3 YEARS
     Route: 061

REACTIONS (4)
  - Application site irritation [Recovering/Resolving]
  - Application site inflammation [Recovering/Resolving]
  - Application site pain [Recovering/Resolving]
  - Off label use [Unknown]
